FAERS Safety Report 12282691 (Version 1)
Quarter: 2016Q2

REPORT INFORMATION
  Report Type: Report from Study
  Country: DE (occurrence: DE)
  Receive Date: 20160419
  Receipt Date: 20160419
  Transmission Date: 20160815
  Serious: Yes (Life-Threatening, Hospitalization, Disabling)
  Sender: FDA-Public Use
  Company Number: DE-TEVA-653070ISR

PATIENT
  Age: 63 Year
  Sex: Female
  Weight: 74.2 kg

DRUGS (3)
  1. TREOSULFAN [Suspect]
     Active Substance: TREOSULFAN
     Dosage: 21.1 MILLIGRAM DAILY;
     Route: 065
     Dates: start: 20160327, end: 20160329
  2. THIOTEPA. [Suspect]
     Active Substance: THIOTEPA
     Dosage: 335 MILLIGRAM DAILY;
     Route: 065
     Dates: start: 20160324, end: 20160326
  3. FLUDARABINE [Suspect]
     Active Substance: FLUDARABINE PHOSPHATE
     Indication: BONE MARROW CONDITIONING REGIMEN
     Dosage: 53 MILLIGRAM DAILY;
     Route: 065
     Dates: start: 20160324, end: 20160326

REACTIONS (3)
  - Renal failure [Not Recovered/Not Resolved]
  - Sepsis [Not Recovered/Not Resolved]
  - Hepatic failure [Not Recovered/Not Resolved]

NARRATIVE: CASE EVENT DATE: 20160404
